FAERS Safety Report 23936770 (Version 1)
Quarter: 2024Q2

REPORT INFORMATION
  Report Type: Report from Study
  Country: DE (occurrence: DE)
  Receive Date: 20240604
  Receipt Date: 20240604
  Transmission Date: 20240715
  Serious: Yes (Hospitalization, Other)
  Sender: FDA-Public Use
  Company Number: None

PATIENT
  Age: 67 Year
  Sex: Female

DRUGS (4)
  1. METHOTREXATE [Suspect]
     Active Substance: METHOTREXATE
     Indication: Product used for unknown indication
  2. ENBREL [Suspect]
     Active Substance: BENZYL ALCOHOL\ETANERCEPT
     Indication: Product used for unknown indication
  3. ABATACEPT [Suspect]
     Active Substance: ABATACEPT
     Indication: Rheumatoid arthritis
     Dates: end: 20230626
  4. ETANERCEPT [Suspect]
     Active Substance: ETANERCEPT
     Indication: Rheumatoid arthritis

REACTIONS (14)
  - Nasopharyngitis [Recovered/Resolved]
  - Proteus test positive [Unknown]
  - Urinary tract infection [Recovered/Resolved]
  - Headache [Not Recovered/Not Resolved]
  - Large intestinal stenosis [Unknown]
  - Glaucoma [Unknown]
  - Diverticulitis [Unknown]
  - Breast mass [Not Recovered/Not Resolved]
  - Abdominal adhesions [Unknown]
  - Alopecia [Unknown]
  - Escherichia test positive [Unknown]
  - Staphylococcus test positive [Unknown]
  - Haemorrhoids [Recovered/Resolved]
  - Subcutaneous abscess [Unknown]

NARRATIVE: CASE EVENT DATE: 20220825
